FAERS Safety Report 4711681-7 (Version None)
Quarter: 2005Q3

REPORT INFORMATION
  Report Type: 
  Country: None (occurrence: None)
  Receive Date: 20050708
  Receipt Date: 20050627
  Transmission Date: 20060218
  Serious: Yes (Other)
  Sender: FDA-Public Use
  Company Number: 2005090269

PATIENT
  Sex: Male
  Weight: 111.1313 kg

DRUGS (5)
  1. CELEBREX [Suspect]
     Indication: BACK INJURY
     Dosage: 200 MG (200 MG, 1 IN 1 D), ORAL
     Route: 048
  2. CELEBREX [Suspect]
     Indication: INFLAMMATION
     Dosage: 200 MG (200 MG, 1 IN 1 D), ORAL
     Route: 048
  3. OXYCONTIN [Concomitant]
  4. SOMA [Concomitant]
  5. BACLOFEN [Concomitant]

REACTIONS (5)
  - DRUG INEFFECTIVE [None]
  - DYSPHAGIA [None]
  - EATING DISORDER [None]
  - LUNG NEOPLASM MALIGNANT [None]
  - PULMONARY EMBOLISM [None]
